FAERS Safety Report 6044030-5 (Version None)
Quarter: 2009Q1

REPORT INFORMATION
  Report Type: 
  Country: None (occurrence: None)
  Receive Date: 20090120
  Receipt Date: 20090113
  Transmission Date: 20090719
  Serious: Yes (Death)
  Sender: FDA-Public Use
  Company Number: GR-AVENTIS-200910426GDDC

PATIENT
  Age: 72 Year
  Sex: Male
  Weight: 98 kg

DRUGS (3)
  1. DOCETAXEL [Suspect]
     Dosage: DOSE: UNK
     Route: 042
     Dates: start: 20090109, end: 20090109
  2. CISPLATIN [Suspect]
     Dosage: DOSE: UNK
     Route: 042
     Dates: start: 20090109, end: 20090109
  3. ALOXI [Concomitant]

REACTIONS (2)
  - DEATH [None]
  - MYOCARDIAL INFARCTION [None]
